FAERS Safety Report 6196513-5 (Version None)
Quarter: 2009Q2

REPORT INFORMATION
  Report Type: 
  Country: None (occurrence: None)
  Receive Date: 20090520
  Receipt Date: 20090115
  Transmission Date: 20091009
  Serious: No
  Sender: FDA-Public Use
  Company Number: US-ABBOTT-09P-163-0498374-00

PATIENT
  Sex: Female

DRUGS (2)
  1. ZEMPLAR [Suspect]
     Indication: HYPERPARATHYROIDISM
     Route: 042
     Dates: start: 20070701, end: 20090101
  2. PHOSLO [Suspect]
     Indication: RENAL DISORDER

REACTIONS (3)
  - BLOOD CREATINE INCREASED [None]
  - HYPERCALCAEMIA [None]
  - RENAL IMPAIRMENT [None]
